FAERS Safety Report 5141871-3 (Version None)
Quarter: 2006Q4

REPORT INFORMATION
  Report Type: 
  Country: None (occurrence: None)
  Receive Date: 20061027
  Receipt Date: 20060824
  Transmission Date: 20070319
  Serious: Yes (Hospitalization, Other)
  Sender: FDA-Public Use
  Company Number: S06-CAN-02402-01

PATIENT
  Age: 91 Year
  Sex: Female

DRUGS (15)
  1. MEMANTINE HCL [Suspect]
     Indication: DEMENTIA ALZHEIMER'S TYPE
     Dosage: 10 MG BID PO
     Route: 048
     Dates: start: 20051201, end: 20060314
  2. DIDROCAL [Concomitant]
  3. CALCIUM [Concomitant]
  4. ACCUPRIL [Concomitant]
  5. NORVASC [Concomitant]
  6. HYDROCHLOROTHIAZIDE [Concomitant]
  7. PLAVIX [Concomitant]
  8. ARTHROTEC [Concomitant]
  9. TYLENOL [Concomitant]
  10. COLACE (DOCUSATE SODIUM) [Concomitant]
  11. SENOKOT [Concomitant]
  12. METAMUCIL 48.6 [Concomitant]
  13. ASCORBIC ACID [Concomitant]
  14. VITAMIN D [Concomitant]
  15. ATIVAN [Concomitant]

REACTIONS (2)
  - INTESTINAL OBSTRUCTION [None]
  - PANCREATITIS [None]
